FAERS Safety Report 12771077 (Version 1)
Quarter: 2016Q3

REPORT INFORMATION
  Report Type: Spontaneous
  Country: FI (occurrence: FI)
  Receive Date: 20160922
  Receipt Date: 20160922
  Transmission Date: 20161109
  Serious: Yes (Hospitalization)
  Sender: FDA-Public Use
  Company Number: FI-ELI_LILLY_AND_COMPANY-FI201608010484

PATIENT
  Age: 30 Year
  Sex: Female

DRUGS (2)
  1. ZYPADHERA [Suspect]
     Active Substance: OLANZAPINE PAMOATE
     Dosage: UNK UNK, MONTHLY (1/M)
     Route: 030
     Dates: start: 2016
  2. ZYPADHERA [Suspect]
     Active Substance: OLANZAPINE PAMOATE
     Indication: SCHIZOPHRENIA
     Dosage: UNK, 2/M
     Route: 030

REACTIONS (2)
  - Panic attack [Unknown]
  - Schizophrenia [Unknown]

NARRATIVE: CASE EVENT DATE: 2016
